FAERS Safety Report 15436413 (Version 1)
Quarter: 2018Q3

REPORT INFORMATION
  Report Type: Report from Study
  Country: CA (occurrence: CA)
  Receive Date: 20180927
  Receipt Date: 20180927
  Transmission Date: 20181010
  Serious: Yes (Hospitalization, Other)
  Sender: FDA-Public Use
  Company Number: CA-PFIZER INC-2018386168

PATIENT
  Age: 34 Year
  Sex: Female

DRUGS (10)
  1. ACYCLOVIR [ACICLOVIR] [Concomitant]
     Active Substance: ACYCLOVIR
     Indication: PREMEDICATION
     Dosage: 200 MG, 2X/DAY
     Route: 048
  2. METHYLPREDNISOLONE. [Concomitant]
     Active Substance: METHYLPREDNISOLONE
     Indication: PREMEDICATION
     Dosage: 500 MG, UNK
     Route: 042
  3. TYLENOL [Concomitant]
     Active Substance: ACETAMINOPHEN
     Indication: PREMEDICATION
     Dosage: 975 MG, UNK
     Route: 048
  4. SALBUTAMOL SULFATE [Concomitant]
     Active Substance: ALBUTEROL SULFATE
     Indication: ASTHMA
     Dosage: UNK
  5. ADVIL [Suspect]
     Active Substance: IBUPROFEN
     Indication: HEADACHE
     Dosage: UNK
     Route: 048
  6. ALEMTUZUMAB [Suspect]
     Active Substance: ALEMTUZUMAB
     Indication: RELAPSING-REMITTING MULTIPLE SCLEROSIS
     Dosage: 12 MG, 1X/DAY
     Route: 042
  7. GRAVOL [Concomitant]
     Active Substance: DIMENHYDRINATE
     Indication: PREMEDICATION
     Dosage: 50 MG, UNK
     Route: 048
  8. RANITIDINE. [Concomitant]
     Active Substance: RANITIDINE
     Indication: PREMEDICATION
     Dosage: UNK
  9. REACTINE [CETIRIZINE HYDROCHLORIDE] [Concomitant]
     Active Substance: CETIRIZINE HYDROCHLORIDE
     Indication: PREMEDICATION
     Dosage: 10 MG, UNK
     Route: 048
  10. BENADRYL [Concomitant]
     Active Substance: DIPHENHYDRAMINE HYDROCHLORIDE
     Indication: PREMEDICATION
     Dosage: 50 MG, UNK
     Route: 048

REACTIONS (52)
  - Dyspnoea [Not Recovered/Not Resolved]
  - Rash [Not Recovered/Not Resolved]
  - Burning sensation [Not Recovered/Not Resolved]
  - Confusional state [Not Recovered/Not Resolved]
  - Lymphocyte count decreased [Not Recovered/Not Resolved]
  - Sensory disturbance [Not Recovered/Not Resolved]
  - Abdominal pain [Not Recovered/Not Resolved]
  - Dizziness [Not Recovered/Not Resolved]
  - Haematochezia [Not Recovered/Not Resolved]
  - Chromaturia [Not Recovered/Not Resolved]
  - Erythema [Not Recovered/Not Resolved]
  - Feeling hot [Not Recovered/Not Resolved]
  - Palpitations [Not Recovered/Not Resolved]
  - Hypertension [Not Recovered/Not Resolved]
  - Blood thyroid stimulating hormone increased [Not Recovered/Not Resolved]
  - Nasal discomfort [Not Recovered/Not Resolved]
  - Headache [Not Recovered/Not Resolved]
  - Urticaria [Not Recovered/Not Resolved]
  - Contusion [Not Recovered/Not Resolved]
  - Heart rate irregular [Not Recovered/Not Resolved]
  - Tachycardia [Not Recovered/Not Resolved]
  - Tremor [Not Recovered/Not Resolved]
  - Epigastric discomfort [Not Recovered/Not Resolved]
  - Flatulence [Not Recovered/Not Resolved]
  - Gingival swelling [Not Recovered/Not Resolved]
  - Nausea [Not Recovered/Not Resolved]
  - Chest discomfort [Not Recovered/Not Resolved]
  - Dehydration [Not Recovered/Not Resolved]
  - Incoherent [Not Recovered/Not Resolved]
  - Musculoskeletal chest pain [Not Recovered/Not Resolved]
  - Red cell distribution width increased [Not Recovered/Not Resolved]
  - White blood cells urine positive [Not Recovered/Not Resolved]
  - Swelling face [Not Recovered/Not Resolved]
  - Anxiety [Not Recovered/Not Resolved]
  - Dental caries [Not Recovered/Not Resolved]
  - Fatigue [Not Recovered/Not Resolved]
  - Feeling abnormal [Not Recovered/Not Resolved]
  - Pyrexia [Not Recovered/Not Resolved]
  - Diarrhoea [Not Recovered/Not Resolved]
  - Dyspepsia [Not Recovered/Not Resolved]
  - Bradycardia [Not Recovered/Not Resolved]
  - Eye movement disorder [Not Recovered/Not Resolved]
  - Gastroenteritis viral [Not Recovered/Not Resolved]
  - Insomnia [Not Recovered/Not Resolved]
  - Uterine mass [Not Recovered/Not Resolved]
  - Mouth swelling [Not Recovered/Not Resolved]
  - Blood pressure decreased [Not Recovered/Not Resolved]
  - Faeces discoloured [Not Recovered/Not Resolved]
  - Flushing [Not Recovered/Not Resolved]
  - Hypoaesthesia [Not Recovered/Not Resolved]
  - Infusion site pain [Not Recovered/Not Resolved]
  - Respiratory tract congestion [Not Recovered/Not Resolved]
